FAERS Safety Report 4389516-4 (Version None)
Quarter: 2004Q3

REPORT INFORMATION
  Report Type: 
  Country: None (occurrence: None)
  Receive Date: 20040702
  Receipt Date: 20040622
  Transmission Date: 20050211
  Serious: Yes (Hospitalization)
  Sender: FDA-Public Use
  Company Number: CH-GLAXOSMITHKLINE-B0337347A

PATIENT
  Sex: Male

DRUGS (3)
  1. LAMICTAL [Suspect]
     Indication: EPILEPSY
     Dosage: 100MG TWICE PER DAY
     Route: 048
     Dates: start: 20040101
  2. ZYRTEC [Concomitant]
     Indication: ECZEMA
     Dosage: 10MG THREE TIMES PER DAY
     Route: 048
  3. ATARAX [Concomitant]
     Indication: ECZEMA
     Dosage: 25MG PER DAY
     Route: 048

REACTIONS (1)
  - ECZEMA [None]
